FAERS Safety Report 14529162 (Version 2)
Quarter: 2018Q1

REPORT INFORMATION
  Report Type: Report from Study
  Country: AU (occurrence: AU)
  Receive Date: 20180214
  Receipt Date: 20180327
  Transmission Date: 20180509
  Serious: Yes (Death, Life-Threatening, Hospitalization, Other)
  Sender: FDA-Public Use
  Company Number: AU-TAKEDA-2018MPI001585

PATIENT
  Age: 56 Year
  Sex: Female
  Weight: 73.4 kg

DRUGS (23)
  1. METOCLOPRAMIDE. [Concomitant]
     Active Substance: METOCLOPRAMIDE
     Indication: PROPHYLAXIS OF NAUSEA AND VOMITING
     Dosage: 10 MG, UNK
     Route: 048
     Dates: start: 20161108
  2. AMIODARONE [Concomitant]
     Active Substance: AMIODARONE
     Dosage: 200 MG, BID
     Route: 048
     Dates: start: 20170731, end: 20170806
  3. VELCADE [Suspect]
     Active Substance: BORTEZOMIB
     Indication: PLASMA CELL MYELOMA
     Dosage: 1.3 MG/M2, UNK
     Route: 058
     Dates: start: 20161108, end: 20170414
  4. DEXAMETHASONE. [Suspect]
     Active Substance: DEXAMETHASONE
     Dosage: 20 MG, UNK
     Route: 048
     Dates: start: 20170426, end: 20180104
  5. METOPROLOL. [Concomitant]
     Active Substance: METOPROLOL
     Indication: MYOCARDIAL ISCHAEMIA
     Dosage: 50 MG, QD
     Route: 048
     Dates: start: 2009, end: 20170721
  6. METOPROLOL. [Concomitant]
     Active Substance: METOPROLOL
     Dosage: 50 MG, BID
     Route: 048
  7. ATORVASTIN [Concomitant]
     Active Substance: ATORVASTATIN
     Indication: HYPERCHOLESTEROLAEMIA
     Dosage: 40 MG, UNK
     Route: 048
     Dates: start: 2009
  8. PROTAMINE [Concomitant]
     Active Substance: PROTAMINE
     Indication: HAEMOLYSIS
     Dosage: 10 IU, BID
     Route: 048
     Dates: start: 20170225
  9. METOPROLOL. [Concomitant]
     Active Substance: METOPROLOL
     Dosage: 25 MG, BID
     Route: 048
     Dates: start: 20170722, end: 20170726
  10. BACTRIM [Concomitant]
     Active Substance: SULFAMETHOXAZOLE\TRIMETHOPRIM
     Indication: ANTIBIOTIC PROPHYLAXIS
     Dosage: UNK, 2/WEEK
     Route: 048
     Dates: start: 20161108
  11. VENETOCLAX. [Suspect]
     Active Substance: VENETOCLAX
     Indication: PLASMA CELL MYELOMA
     Dosage: UNK, QD
     Route: 048
     Dates: start: 20161108, end: 20180104
  12. PLACEBO [Suspect]
     Active Substance: UNSPECIFIED INGREDIENT
     Indication: PLASMA CELL MYELOMA
     Dosage: UNK UNK, QD
     Route: 048
     Dates: start: 20161108, end: 20180104
  13. ASPIRIN                            /00002701/ [Concomitant]
     Active Substance: ASPIRIN
     Indication: MYOCARDIAL ISCHAEMIA
     Dosage: 100 MG, QD
     Route: 048
     Dates: start: 2010
  14. NOVOMIX [Concomitant]
     Active Substance: INSULIN ASPART
     Indication: TYPE 2 DIABETES MELLITUS
     Dosage: 13 IU, BID
     Route: 058
     Dates: start: 2009, end: 20170224
  15. PERINDOPRIL [Concomitant]
     Active Substance: PERINDOPRIL
     Indication: HYPERTENSION
     Dosage: 2.5 MG, QD
     Route: 048
     Dates: start: 20170724
  16. AMIODARONE [Concomitant]
     Active Substance: AMIODARONE
     Dosage: 200 MG, QD
     Route: 048
     Dates: start: 20170807
  17. FOLATE [Concomitant]
     Active Substance: FOLATE SODIUM
     Indication: HAEMOLYSIS
     Dosage: 5 MG, QD
     Route: 048
     Dates: start: 20170824
  18. VELCADE [Suspect]
     Active Substance: BORTEZOMIB
     Dosage: 1.3 MG/M2, UNK
     Route: 058
     Dates: start: 20170426, end: 20180104
  19. DEXAMETHASONE. [Suspect]
     Active Substance: DEXAMETHASONE
     Indication: PLASMA CELL MYELOMA
     Dosage: 20 MG, UNK
     Route: 048
     Dates: start: 20161108, end: 20170415
  20. VALACICLOVIR [Concomitant]
     Active Substance: VALACYCLOVIR HYDROCHLORIDE
     Indication: ANTIVIRAL PROPHYLAXIS
     Dosage: 500 MG, QD
     Route: 048
     Dates: start: 20161108
  21. GLYCERYL TRINITRATE [Concomitant]
     Active Substance: NITROGLYCERIN
     Indication: ISCHAEMIC HEART DISEASE PROPHYLAXIS
     Dosage: 400 UG, UNK
     Route: 060
     Dates: start: 20170729
  22. METFORMIN [Concomitant]
     Active Substance: METFORMIN HYDROCHLORIDE
     Indication: TYPE 2 DIABETES MELLITUS
     Dosage: 500 MG, BID
     Route: 065
     Dates: start: 2009
  23. AMIODARONE [Concomitant]
     Active Substance: AMIODARONE
     Indication: VENTRICULAR TACHYCARDIA
     Dosage: 400 MG, TID
     Route: 048
     Dates: start: 20170728, end: 20170730

REACTIONS (2)
  - Septic shock [Recovered/Resolved]
  - Multiple organ dysfunction syndrome [Fatal]

NARRATIVE: CASE EVENT DATE: 20180107
